FAERS Safety Report 12556342 (Version 1)
Quarter: 2016Q3

REPORT INFORMATION
  Report Type: Spontaneous
  Country: AT (occurrence: AT)
  Receive Date: 20160714
  Receipt Date: 20160714
  Transmission Date: 20161109
  Serious: Yes (Other)
  Sender: FDA-Public Use
  Company Number: AT-PFIZER INC-2016076695

PATIENT
  Age: 16 Year
  Sex: Female

DRUGS (11)
  1. TEMESTA [Suspect]
     Active Substance: LORAZEPAM
     Dosage: 2 MG, UNK
     Route: 042
     Dates: start: 20151108, end: 20151111
  2. TEMESTA [Suspect]
     Active Substance: LORAZEPAM
     Dosage: 2.5 MG, UNK
     Route: 048
     Dates: start: 20151112
  3. SEROQUEL XR [Suspect]
     Active Substance: QUETIAPINE FUMARATE
     Dosage: INCREASING TILL 700 MG, UNK
     Route: 048
     Dates: start: 20151109
  4. TEMESTA [Suspect]
     Active Substance: LORAZEPAM
     Dosage: 2.5 MG, 1X/DAY
     Route: 048
     Dates: start: 20151107, end: 20151107
  5. NOZINAN [Suspect]
     Active Substance: LEVOMEPROMAZINE
     Dosage: 150 MG, UNK
     Route: 048
     Dates: start: 20151107, end: 20151107
  6. ABILIFY [Suspect]
     Active Substance: ARIPIPRAZOLE
     Dosage: 15 MG, UNK
     Route: 048
     Dates: start: 20151105, end: 20151108
  7. ABILIFY [Suspect]
     Active Substance: ARIPIPRAZOLE
     Dosage: 10 MG, UNK
     Route: 048
     Dates: start: 20151109, end: 20151111
  8. SEROQUEL XR [Suspect]
     Active Substance: QUETIAPINE FUMARATE
     Dosage: 200 MG, UNK (SINCE WEEKS)
     Route: 048
     Dates: end: 20151108
  9. DEPAKINE [Concomitant]
     Active Substance: VALPROATE SODIUM
     Dosage: INCREASING TILL 1000 MG, UNK
     Dates: start: 20151108
  10. TEMESTA [Suspect]
     Active Substance: LORAZEPAM
     Dosage: 6 MG, UNK
     Route: 042
     Dates: start: 20151105, end: 20151105
  11. NOZINAN [Suspect]
     Active Substance: LEVOMEPROMAZINE
     Dosage: 50 MG, UNK
     Route: 048
     Dates: start: 20151106, end: 20151106

REACTIONS (3)
  - Urinary retention [Recovered/Resolved]
  - Abdominal pain lower [Recovered/Resolved]
  - Urinary retention [Recovered/Resolved]

NARRATIVE: CASE EVENT DATE: 20151108
